FAERS Safety Report 6527372-6 (Version None)
Quarter: 2009Q4

REPORT INFORMATION
  Report Type: 
  Country: None (occurrence: None)
  Receive Date: 20091229
  Receipt Date: 20091215
  Transmission Date: 20100525
  Serious: Yes (Other)
  Sender: FDA-Public Use
  Company Number: 1000010921

PATIENT
  Sex: Female

DRUGS (1)
  1. ESCITALOPRAM OXALATE [Suspect]

REACTIONS (5)
  - ANORGASMIA [None]
  - CONDITION AGGRAVATED [None]
  - IRRITABILITY [None]
  - RESTLESSNESS [None]
  - SLEEP DISORDER [None]
